FAERS Safety Report 9491056 (Version 1)
Quarter: 2013Q3

REPORT INFORMATION
  Report Type: Spontaneous
  Country: FR (occurrence: FR)
  Receive Date: 20130830
  Receipt Date: 20130830
  Transmission Date: 20140515
  Serious: Yes (Hospitalization)
  Sender: FDA-Public Use
  Company Number: FR-SUN PHARMACEUTICAL INDUSTRIES LTD-2013SUN04539

PATIENT
  Age: 59 Year
  Sex: Female

DRUGS (5)
  1. CARBOPLATIN [Suspect]
     Indication: OVARIAN CANCER
     Route: 065
  2. BEVACIZUMAB [Suspect]
     Indication: OVARIAN CANCER
  3. DOXORUBICIN [Suspect]
     Indication: OVARIAN CANCER
  4. CYCLOPHOSPHAMIDE [Suspect]
     Indication: OVARIAN CANCER
  5. PACLITAXEL [Suspect]
     Indication: OVARIAN CANCER

REACTIONS (3)
  - Renal failure acute [Unknown]
  - Metabolic acidosis [Unknown]
  - Cardiac failure [Unknown]
